FAERS Safety Report 17688106 (Version 1)
Quarter: 2020Q2

REPORT INFORMATION
  Report Type: Spontaneous
  Country: US (occurrence: US)
  Receive Date: 20200417
  Receipt Date: 20200417
  Transmission Date: 20200714
  Serious: Yes (Other)
  Sender: FDA-Public Use
  Company Number: None

PATIENT
  Age: 71 Year
  Sex: Male

DRUGS (1)
  1. PIOGLITAZONE (PIOGLITAZONE HCL 30MG TAB) [Suspect]
     Active Substance: PIOGLITAZONE HYDROCHLORIDE
     Indication: DIABETES MELLITUS
     Dates: start: 20121031, end: 20190904

REACTIONS (2)
  - Transitional cell carcinoma [None]
  - Transurethral bladder resection [None]

NARRATIVE: CASE EVENT DATE: 20190904
